FAERS Safety Report 9807674 (Version 2)
Quarter: 2014Q1

REPORT INFORMATION
  Report Type: Spontaneous
  Country: US (occurrence: US)
  Receive Date: 20140110
  Receipt Date: 20140116
  Transmission Date: 20141002
  Serious: Yes (Other)
  Sender: FDA-Public Use
  Company Number: US-NAPPMUNDI-USA-2014-0110063

PATIENT
  Age: 80 Year
  Sex: Male

DRUGS (3)
  1. OXYCODONE HYDROCHLORIDE (SIMILAR TO NDA 22-272) [Suspect]
     Indication: PRODUCT USED FOR UNKNOWN INDICATION
     Route: 048
  2. OXYCONTIN (NDA 22-272) [Suspect]
     Indication: PAIN
     Dosage: 30 MG, Q6H
     Route: 048
     Dates: start: 2009
  3. LYRICA [Concomitant]
     Indication: PAIN IN EXTREMITY
     Dosage: 40 MG, DAILY
     Route: 048
     Dates: start: 2013

REACTIONS (5)
  - Myocardial infarction [Unknown]
  - Type 2 diabetes mellitus [Unknown]
  - Diplopia [Unknown]
  - Alopecia [Unknown]
  - Pain in extremity [Not Recovered/Not Resolved]
